FAERS Safety Report 14870352 (Version 2)
Quarter: 2019Q4

REPORT INFORMATION
  Report Type: Report from Study
  Country: FR (occurrence: FR)
  Receive Date: 20180509
  Receipt Date: 20191025
  Transmission Date: 20200122
  Serious: Yes (Hospitalization)
  Sender: FDA-Public Use
  Company Number: FR-IPSEN BIOPHARMACEUTICALS, INC.-2017-06886

PATIENT
  Age: 3 Year
  Sex: Male
  Weight: 13.8 kg

DRUGS (5)
  1. INCRELEX [Suspect]
     Active Substance: MECASERMIN
     Route: 065
     Dates: start: 20140629, end: 20140707
  2. INCRELEX [Suspect]
     Active Substance: MECASERMIN
     Indication: PRIMARY INSULIN LIKE GROWTH FACTOR-1 DEFICIENCY
     Route: 065
     Dates: start: 20151118, end: 20160607
  3. INCRELEX [Suspect]
     Active Substance: MECASERMIN
     Route: 065
     Dates: start: 20140620, end: 20140628
  4. INCRELEX [Suspect]
     Active Substance: MECASERMIN
     Route: 065
     Dates: start: 20140708, end: 20150414
  5. INCRELEX [Suspect]
     Active Substance: MECASERMIN
     Route: 065
     Dates: start: 20150415, end: 20151117

REACTIONS (3)
  - Overdose [Unknown]
  - Adenotonsillectomy [Recovered/Resolved]
  - Sleep apnoea syndrome [Recovered/Resolved]

NARRATIVE: CASE EVENT DATE: 20160122
